FAERS Safety Report 11730731 (Version 6)
Quarter: 2016Q1

REPORT INFORMATION
  Report Type: Spontaneous
  Country: US (occurrence: US)
  Receive Date: 20151112
  Receipt Date: 20160118
  Transmission Date: 20160525
  Serious: Yes (Other)
  Sender: FDA-Public Use
  Company Number: US-LUNDBECK-DKLU2006209

PATIENT
  Age: 54 Year
  Sex: Female
  Weight: 54 kg

DRUGS (12)
  1. NORTHERA [Suspect]
     Active Substance: DROXIDOPA
     Indication: ORTHOSTATIC HYPOTENSION
     Route: 048
     Dates: start: 20151029
  2. ZOFRAN [Concomitant]
     Active Substance: ONDANSETRON HYDROCHLORIDE
     Indication: NAUSEA
     Route: 048
  3. NORTHERA [Suspect]
     Active Substance: DROXIDOPA
     Indication: AUTONOMIC NEUROPATHY
     Route: 048
     Dates: start: 20151029
  4. NORTHERA [Suspect]
     Active Substance: DROXIDOPA
     Route: 048
  5. SERTRALINE [Concomitant]
     Active Substance: SERTRALINE HYDROCHLORIDE
     Indication: AUTONOMIC NERVOUS SYSTEM IMBALANCE
     Route: 048
  6. MAG OXIDE [Concomitant]
     Active Substance: MAGNESIUM OXIDE
     Indication: PRODUCT USED FOR UNKNOWN INDICATION
     Route: 065
  7. PROPRANOLOL [Concomitant]
     Active Substance: PROPRANOLOL\PROPRANOLOL HYDROCHLORIDE
     Indication: BLOOD PRESSURE SYSTOLIC
     Route: 048
  8. FLORINEF ACETATE [Concomitant]
     Active Substance: FLUDROCORTISONE ACETATE
     Indication: ORTHOSTATIC HYPOTENSION
     Route: 048
     Dates: start: 20150125
  9. ASA [Concomitant]
     Active Substance: ASPIRIN
     Indication: PRODUCT USED FOR UNKNOWN INDICATION
     Route: 065
  10. NORTHERA [Suspect]
     Active Substance: DROXIDOPA
     Route: 048
  11. MIDODRINE [Concomitant]
     Active Substance: MIDODRINE
     Indication: PRODUCT USED FOR UNKNOWN INDICATION
     Route: 048
  12. PYRIDOSTIGMINE [Concomitant]
     Active Substance: PYRIDOSTIGMINE
     Indication: PRODUCT USED FOR UNKNOWN INDICATION
     Route: 048

REACTIONS (20)
  - Malaise [Unknown]
  - Genitourinary symptom [Unknown]
  - Dizziness [Unknown]
  - Vomiting [Unknown]
  - Nausea [Recovered/Resolved]
  - Bradycardia [Recovered/Resolved]
  - Pyrexia [Not Recovered/Not Resolved]
  - Chest discomfort [Recovered/Resolved]
  - Muscular weakness [Recovered/Resolved]
  - Hypoaesthesia [Unknown]
  - Hyperhidrosis [Recovered/Resolved]
  - Hot flush [Unknown]
  - Headache [Recovered/Resolved]
  - Confusional state [Not Recovered/Not Resolved]
  - Visual impairment [Unknown]
  - Fatigue [Recovered/Resolved]
  - Blood pressure fluctuation [Not Recovered/Not Resolved]
  - Hypertension [Unknown]
  - Loss of consciousness [Not Recovered/Not Resolved]
  - Abdominal discomfort [Unknown]

NARRATIVE: CASE EVENT DATE: 20151029
